FAERS Safety Report 9280226 (Version 1)
Quarter: 2013Q2

REPORT INFORMATION
  Report Type: Report from Study
  Country: US (occurrence: US)
  Receive Date: 20130509
  Receipt Date: 20130509
  Transmission Date: 20140414
  Serious: Yes (Death)
  Sender: FDA-Public Use
  Company Number: PHEH2013US010166

PATIENT
  Age: 67 Year
  Sex: Male

DRUGS (2)
  1. TOBI [Suspect]
     Indication: CHRONIC OBSTRUCTIVE PULMONARY DISEASE
     Dosage: 300 MG, BID
     Dates: start: 201211
  2. PULMOZYME [Concomitant]
     Dosage: 2.5 ML, UNK

REACTIONS (1)
  - Death [Fatal]
